FAERS Safety Report 17352397 (Version 1)
Quarter: 2020Q1

REPORT INFORMATION
  Report Type: Spontaneous
  Country: IT (occurrence: IT)
  Receive Date: 20200130
  Receipt Date: 20200130
  Transmission Date: 20200409
  Serious: Yes (Hospitalization)
  Sender: FDA-Public Use
  Company Number: IT-BAUSCH-BL-2020-002566

PATIENT
  Age: 62 Year
  Sex: Male

DRUGS (4)
  1. DEXAMETHASONE. [Suspect]
     Active Substance: DEXAMETHASONE
     Indication: PLASMA CELL MYELOMA
     Dosage: 2 UNSPECIFIED UNIT
     Route: 065
     Dates: start: 20191128
  2. BORTEZOMIB. [Suspect]
     Active Substance: BORTEZOMIB
     Indication: PLASMA CELL MYELOMA
     Route: 065
  3. BORTEZOMIB. [Suspect]
     Active Substance: BORTEZOMIB
     Indication: CARDIAC AMYLOIDOSIS
     Dosage: 2 UNSPECIFIED UNIT, 4 TOTAL ADMINISTRATIONS TWICE A WEEK
     Route: 065
     Dates: start: 20191128
  4. DEXAMETHASONE. [Suspect]
     Active Substance: DEXAMETHASONE
     Indication: CARDIAC AMYLOIDOSIS
     Route: 065

REACTIONS (3)
  - Hypernatraemia [Unknown]
  - Polyneuropathy [Unknown]
  - Ileus paralytic [Unknown]

NARRATIVE: CASE EVENT DATE: 201912
